FAERS Safety Report 9475132 (Version 1)
Quarter: 2013Q3

REPORT INFORMATION
  Report Type: Spontaneous
  Country: US (occurrence: US)
  Receive Date: 20130824
  Receipt Date: 20130824
  Transmission Date: 20140515
  Serious: Yes (Death)
  Sender: FDA-Public Use
  Company Number: US-ROCHE-1266108

PATIENT
  Sex: Female

DRUGS (10)
  1. XELODA [Suspect]
     Indication: COLON CANCER
     Dosage: 2 WEEKS ON, 1 WEEK OFF
     Route: 048
  2. TRAMADOL [Concomitant]
  3. OMEPRAZOLE [Concomitant]
  4. RANITIDINE [Concomitant]
  5. LOSARTAN [Concomitant]
  6. LEVOFLOXACIN [Concomitant]
  7. SUCRALFATE [Concomitant]
  8. LOVASTATIN [Concomitant]
  9. OXYBUTYNIN [Concomitant]
  10. FUROSEMIDE [Concomitant]

REACTIONS (1)
  - Death [Fatal]
